FAERS Safety Report 7061736-X (Version None)
Quarter: 2010Q4

REPORT INFORMATION
  Report Type: 
  Country: None (occurrence: None)
  Receive Date: 20101026
  Receipt Date: 20101013
  Transmission Date: 20110411
  Serious: Yes (Hospitalization)
  Sender: FDA-Public Use
  Company Number: US-ELI_LILLY_AND_COMPANY-US201010005169

PATIENT
  Sex: Female
  Weight: 104.31 kg

DRUGS (10)
  1. PRASUGREL HYDROCHLORIDE [Suspect]
     Indication: ACUTE CORONARY SYNDROME
     Dosage: 10 MG, DAILY (1/D)
     Route: 065
     Dates: start: 20100501
  2. MERCAPTOPURINE [Concomitant]
     Indication: CROHN'S DISEASE
     Dosage: 100 MG, DAILY (1/D)
     Route: 048
  3. LASIX [Concomitant]
     Indication: HYPERTENSION
     Dosage: 40 MG, DAILY (1/D)
     Route: 048
  4. LANTUS [Concomitant]
     Indication: DIABETES MELLITUS
     Dosage: 150 IU, DAILY (1/D)
     Route: 058
  5. METOPROLOL [Concomitant]
     Indication: HYPERTENSION
     Dosage: 150 MG, 2/D
     Route: 048
  6. NOVOLOG [Concomitant]
     Indication: DIABETES MELLITUS
     Dosage: 150 IU, 3/D
     Route: 058
  7. PROTONIX [Concomitant]
     Indication: GASTROOESOPHAGEAL REFLUX DISEASE
     Dosage: 40 MG, DAILY (1/D)
     Route: 048
  8. RANITIDINE [Concomitant]
     Indication: GASTROOESOPHAGEAL REFLUX DISEASE
     Dosage: 150 MG, DAILY (1/D)
     Route: 048
  9. PLAVIX [Concomitant]
     Indication: PRODUCT USED FOR UNKNOWN INDICATION
     Dosage: 75 MG, DAILY (1/D)
     Route: 048
  10. ASPIRIN [Concomitant]
     Indication: PRODUCT USED FOR UNKNOWN INDICATION
     Dosage: 325 MG, DAILY (1/D)
     Route: 065

REACTIONS (1)
  - ANGINA UNSTABLE [None]
